FAERS Safety Report 4426875-8 (Version None)
Quarter: 2004Q3

REPORT INFORMATION
  Report Type: 
  Country: None (occurrence: None)
  Receive Date: 20040811
  Receipt Date: 20040726
  Transmission Date: 20050211
  Serious: Yes (Hospitalization)
  Sender: FDA-Public Use
  Company Number: FR_040704509

PATIENT
  Age: 24 Year
  Sex: Female

DRUGS (5)
  1. ZYPREXA [Suspect]
     Dates: start: 20040430, end: 20040430
  2. HAVLANE (LOPRAZOLAM MESILATE) [Concomitant]
  3. LEXOMIL (BROMAZEPAM) [Concomitant]
  4. PAROXETINE HCL [Concomitant]
  5. EQUANIL [Concomitant]

REACTIONS (6)
  - AGITATION [None]
  - DRUG ABUSER [None]
  - DRUG TOXICITY [None]
  - HEART RATE INCREASED [None]
  - MIOSIS [None]
  - POLYSUBSTANCE ABUSE [None]
